FAERS Safety Report 19233901 (Version 6)
Quarter: 2021Q2

REPORT INFORMATION
  Report Type: Spontaneous
  Country: CA (occurrence: CA)
  Receive Date: 20210508
  Receipt Date: 20210624
  Transmission Date: 20210717
  Serious: Yes (Hospitalization)
  Sender: FDA-Public Use
  Company Number: CA-CELLTRION INC.-2021CA006267

PATIENT

DRUGS (6)
  1. POTASSIUM CHLORIDE. [Concomitant]
     Active Substance: POTASSIUM CHLORIDE
     Dosage: UNK
  2. ASA [Concomitant]
     Active Substance: ASPIRIN
  3. TYLENOL [Concomitant]
     Active Substance: ACETAMINOPHEN
  4. INFLECTRA [Suspect]
     Active Substance: INFLIXIMAB-DYYB
     Indication: CROHN^S DISEASE
     Dosage: 500 MG AT 2 AND 6 WEEKS, MAINTENANCE EVERY 8 WEEKS
     Route: 042
     Dates: start: 20210417, end: 20210417
  5. INFLECTRA [Suspect]
     Active Substance: INFLIXIMAB-DYYB
     Dosage: 500 MG AT 2 AND 6 WEEKS, MAINTENANCE EVERY 8 WEEKS
     Route: 042
     Dates: start: 20210430
  6. PREDNISONE. [Concomitant]
     Active Substance: PREDNISONE
     Dosage: UNK

REACTIONS (18)
  - Mental disorder [Unknown]
  - Pain in extremity [Unknown]
  - Stress [Unknown]
  - Joint swelling [Not Recovered/Not Resolved]
  - Skin injury [Unknown]
  - Muscle spasms [Unknown]
  - Dysphemia [Unknown]
  - Neuralgia [Unknown]
  - Anger [Unknown]
  - Blister [Unknown]
  - Oral candidiasis [Unknown]
  - Dizziness [Unknown]
  - Agitation [Unknown]
  - Somnolence [Unknown]
  - Pain [Unknown]
  - Asthenia [Unknown]
  - Depression [Unknown]
  - Peripheral swelling [Not Recovered/Not Resolved]

NARRATIVE: CASE EVENT DATE: 202104
